FAERS Safety Report 9409435 (Version 1)
Quarter: 2013Q3

REPORT INFORMATION
  Report Type: Spontaneous
  Country: US (occurrence: US)
  Receive Date: 20130719
  Receipt Date: 20130719
  Transmission Date: 20140515
  Serious: No
  Sender: FDA-Public Use
  Company Number: US-009507513-1307USA006257

PATIENT
  Age: 85 Year
  Sex: Male

DRUGS (2)
  1. PROVENTIL [Suspect]
     Indication: CHRONIC OBSTRUCTIVE PULMONARY DISEASE
     Dosage: 2 PUFFS EVERY 6 HOURS AS NEEDED
     Route: 055
     Dates: start: 20130423
  2. PROVENTIL [Suspect]
     Dosage: UNK
     Route: 055

REACTIONS (5)
  - Rash pruritic [Recovered/Resolved]
  - Rash [Recovered/Resolved]
  - Rash [Recovering/Resolving]
  - Drug ineffective [Unknown]
  - Rash erythematous [Recovered/Resolved]
